FAERS Safety Report 13672606 (Version 2)
Quarter: 2017Q3

REPORT INFORMATION
  Report Type: Spontaneous
  Country: NL (occurrence: NL)
  Receive Date: 20170621
  Receipt Date: 20170814
  Transmission Date: 20171127
  Serious: Yes (Death, Other)
  Sender: FDA-Public Use
  Company Number: NL-ACTELION-A-CH2017-155195

PATIENT
  Age: 69 Year
  Sex: Male

DRUGS (2)
  1. UPTRAVI [Suspect]
     Active Substance: SELEXIPAG
     Indication: PULMONARY ARTERIAL HYPERTENSION
     Dosage: 200 ?G, UNK
     Route: 048
     Dates: start: 20170328, end: 20170608
  2. OPSUMIT [Suspect]
     Active Substance: MACITENTAN
     Indication: PULMONARY ARTERIAL HYPERTENSION
     Dosage: 10 MG, QD
     Route: 048
     Dates: start: 20160423, end: 2017

REACTIONS (2)
  - Adenocarcinoma [Unknown]
  - Death [Fatal]

NARRATIVE: CASE EVENT DATE: 2017
